FAERS Safety Report 21653069 (Version 1)
Quarter: 2022Q4

REPORT INFORMATION
  Report Type: Spontaneous
  Country: DE (occurrence: DE)
  Receive Date: 20221128
  Receipt Date: 20221128
  Transmission Date: 20230113
  Serious: Yes (Death, Hospitalization, Other)
  Sender: FDA-Public Use
  Company Number: DE-BRISTOL-MYERS SQUIBB COMPANY-2022-143218

PATIENT
  Age: 78 Year
  Sex: Male

DRUGS (2)
  1. NIVOLUMAB [Suspect]
     Active Substance: NIVOLUMAB
     Indication: Hepatic cancer
     Route: 065
     Dates: start: 202209
  2. IPILIMUMAB [Suspect]
     Active Substance: IPILIMUMAB
     Indication: Hepatic cancer
     Route: 065
     Dates: start: 202209

REACTIONS (2)
  - Immune-mediated myocarditis [Fatal]
  - Off label use [Unknown]

NARRATIVE: CASE EVENT DATE: 20221010
